FAERS Safety Report 8459163-3 (Version None)
Quarter: 2012Q2

REPORT INFORMATION
  Report Type: 
  Country: None (occurrence: None)
  Receive Date: 20120622
  Receipt Date: 20120619
  Transmission Date: 20120825
  Serious: Yes (Hospitalization)
  Sender: FDA-Public Use
  Company Number: IT-ROCHE-1080151

PATIENT
  Sex: Male

DRUGS (3)
  1. DAPAROX [Concomitant]
  2. ALDACTONE [Concomitant]
  3. CEFTRIAXONE [Suspect]
     Indication: BRONCHITIS
     Route: 030
     Dates: start: 20120414, end: 20120423

REACTIONS (1)
  - PANCREATITIS [None]
